FAERS Safety Report 17076365 (Version 2)
Quarter: 2019Q4

REPORT INFORMATION
  Report Type: Spontaneous
  Country: US (occurrence: US)
  Receive Date: 20191126
  Receipt Date: 20191219
  Transmission Date: 20200122
  Serious: Yes (Hospitalization, Other)
  Sender: FDA-Public Use
  Company Number: US-SIGMAPHARM LABORATORIES, LLC-2019SIG00134

PATIENT
  Age: 42 Year
  Sex: Male
  Weight: 70.3 kg

DRUGS (16)
  1. TRAZODONE HYDROCHLORIDE. [Concomitant]
     Active Substance: TRAZODONE HYDROCHLORIDE
     Dosage: 150 MG, 1X/DAY AT NIGHT
     Route: 048
     Dates: start: 201909
  2. REGULAR INSULIN [Concomitant]
     Active Substance: INSULIN NOS
     Dosage: 7 U WITH EACH MEAL (IF PRE-MEAL BG IS OVER 140, 1 UNIT FOR EVERY 25 POINTS)
  3. RANITIDINE. [Concomitant]
     Active Substance: RANITIDINE
  4. HYDROMORPHONE HCL [Concomitant]
     Active Substance: HYDROMORPHONE HYDROCHLORIDE
     Dosage: UNK, 3X/DAY
     Route: 048
  5. TADALAFIL. [Suspect]
     Active Substance: TADALAFIL
     Indication: PULMONARY ARTERIAL HYPERTENSION
     Dosage: 40 MG, 1X/DAY
     Route: 048
     Dates: end: 2019
  6. HYDROMORPHONE HCL [Concomitant]
     Active Substance: HYDROMORPHONE HYDROCHLORIDE
     Dosage: 2 MG, UP TO 6X/DAY (EVERY 4 HOURS AS NEEDED)
     Route: 048
  7. PANTOPRAZOLE [Concomitant]
     Active Substance: PANTOPRAZOLE
     Dosage: 40 MG, 1X/DAY
     Route: 048
  8. BACITRACIN. [Concomitant]
     Active Substance: BACITRACIN
     Route: 061
  9. LEVEMIR [Concomitant]
     Active Substance: INSULIN DETEMIR
     Dosage: 15 U, 2X/DAY (EVERY 12 HOURS)
     Route: 058
  10. AMBRISENTAN [Suspect]
     Active Substance: AMBRISENTAN
     Indication: PULMONARY ARTERIAL HYPERTENSION
     Dosage: 10 MG, 1X/DAY IN THE MORNING
     Route: 048
     Dates: start: 2019
  11. TADALAFIL. [Suspect]
     Active Substance: TADALAFIL
     Dosage: 20 MG, 1X/DAY IN THE EVENING
     Dates: start: 2019
  12. SILDENAFIL CITRATE. [Concomitant]
     Active Substance: SILDENAFIL CITRATE
  13. TRAZODONE HYDROCHLORIDE. [Concomitant]
     Active Substance: TRAZODONE HYDROCHLORIDE
     Dosage: UNK
     Route: 048
     Dates: end: 201909
  14. TRAMADOL HCL [Concomitant]
     Active Substance: TRAMADOL HYDROCHLORIDE
     Dosage: 50 MG, UP TO 6X/DAY (EVERY 4 HOURS AS NEEDED)
     Route: 048
  15. MELATONIN [Concomitant]
     Active Substance: MELATONIN
     Dosage: 10 MG, 1X/DAY AT NIGHT
     Route: 048
  16. BUSPIRONE HCL [Concomitant]
     Active Substance: BUSPIRONE HYDROCHLORIDE
     Dosage: 10 MG, 3X/DAY
     Route: 048

REACTIONS (28)
  - Neurogenic bladder [Recovering/Resolving]
  - Muscle atrophy [Not Recovered/Not Resolved]
  - Hypotension [Unknown]
  - Skull fracture [Recovering/Resolving]
  - Hypophagia [Not Recovered/Not Resolved]
  - Road traffic accident [Recovered/Resolved]
  - Fibula fracture [Recovering/Resolving]
  - Loss of consciousness [Not Recovered/Not Resolved]
  - Nasopharyngitis [Recovered/Resolved]
  - Decreased appetite [Not Recovered/Not Resolved]
  - Drug ineffective [Not Recovered/Not Resolved]
  - Constipation [Unknown]
  - Affect lability [Unknown]
  - Fall [Not Recovered/Not Resolved]
  - Limb injury [Not Recovered/Not Resolved]
  - Weight decreased [Not Recovered/Not Resolved]
  - Fatigue [Not Recovered/Not Resolved]
  - Craniocerebral injury [Unknown]
  - Upper respiratory tract congestion [Not Recovered/Not Resolved]
  - Tibia fracture [Recovering/Resolving]
  - Insomnia [Unknown]
  - Femur fracture [Recovering/Resolving]
  - Ankle fracture [Recovering/Resolving]
  - Facial bones fracture [Recovering/Resolving]
  - Tunnel vision [Not Recovered/Not Resolved]
  - Pain [Not Recovered/Not Resolved]
  - Gastrooesophageal reflux disease [Unknown]
  - Anxiety [Unknown]

NARRATIVE: CASE EVENT DATE: 2019
